FAERS Safety Report 5504347-7 (Version None)
Quarter: 2007Q4

REPORT INFORMATION
  Report Type: 
  Country: None (occurrence: None)
  Receive Date: 20071101
  Receipt Date: 20060724
  Transmission Date: 20080405
  Serious: Yes (Life-Threatening, Hospitalization, Other)
  Sender: FDA-Public Use
  Company Number: JP-PFIZER INC-2006085502

PATIENT
  Age: 57 Year
  Sex: Female

DRUGS (2)
  1. DEPO-MEDROL [Suspect]
     Indication: HERNIA PAIN
     Route: 037
     Dates: start: 20060704, end: 20060704
  2. ROPIVACAINE HYDROCHLORIDE [Concomitant]
     Dosage: DAILY DOSE:1ML
     Route: 008
     Dates: start: 20060704, end: 20060704

REACTIONS (3)
  - BRAIN DEATH [None]
  - BRAIN STEM INFARCTION [None]
  - CEREBRAL INFARCTION [None]
